FAERS Safety Report 9239204 (Version 1)
Quarter: 2013Q2

REPORT INFORMATION
  Report Type: Report from Study
  Country: HN (occurrence: HN)
  Receive Date: 20130418
  Receipt Date: 20130418
  Transmission Date: 20140414
  Serious: Yes (Death, Hospitalization)
  Sender: FDA-Public Use
  Company Number: HN-ROCHE-1215115

PATIENT
  Sex: Male

DRUGS (1)
  1. BONVIVA [Suspect]
     Indication: OSTEOPOROSIS
     Route: 048
     Dates: start: 20090315, end: 201303

REACTIONS (3)
  - Cardiac failure [Fatal]
  - Decreased appetite [Unknown]
  - Fall [Unknown]
